FAERS Safety Report 5456360-6 (Version None)
Quarter: 2007Q3

REPORT INFORMATION
  Report Type: 
  Country: None (occurrence: None)
  Receive Date: 20070918
  Receipt Date: 20070330
  Transmission Date: 20080115
  Serious: Yes (Other)
  Sender: FDA-Public Use
  Company Number: US-ASTRAZENECA-2006UW25076

PATIENT
  Sex: Male
  Weight: 105.5 kg

DRUGS (7)
  1. SEROQUEL [Suspect]
     Indication: HALLUCINATION, AUDITORY
     Route: 048
     Dates: start: 20060501, end: 20060101
  2. ABILIFY [Concomitant]
     Dates: start: 20061001, end: 20070101
  3. GEODON [Concomitant]
  4. HALDOL [Concomitant]
  5. RISPERDAL [Concomitant]
  6. ZYPREXA [Concomitant]
  7. PAXIL [Concomitant]

REACTIONS (5)
  - CONVULSION [None]
  - DIABETES MELLITUS [None]
  - HYPERTENSION [None]
  - SEXUAL DYSFUNCTION [None]
  - WEIGHT INCREASED [None]
